FAERS Safety Report 15212092 (Version 6)
Quarter: 2018Q3

REPORT INFORMATION
  Report Type: Report from Study
  Country: DE (occurrence: DE)
  Receive Date: 20180730
  Receipt Date: 20180828
  Transmission Date: 20181010
  Serious: Yes (Death, Congenital Anomaly, Other)
  Sender: FDA-Public Use
  Company Number: DE-CONCORDIA PHARMACEUTICALS INC.-E2B_00014759

PATIENT
  Weight: .06 kg

DRUGS (15)
  1. PREDNISOLONE TABLET [Suspect]
     Active Substance: PREDNISOLONE
     Route: 064
  2. TORASEMIDE [Suspect]
     Active Substance: TORSEMIDE
     Indication: PRODUCT USED FOR UNKNOWN INDICATION
     Route: 064
  3. ACETYLSALICYLIC ACID [Suspect]
     Active Substance: ASPIRIN
     Route: 064
  4. EZETIMIBE. [Suspect]
     Active Substance: EZETIMIBE
     Route: 064
  5. ALISKIREN [Suspect]
     Active Substance: ALISKIREN
     Route: 064
  6. PANTOPRAZOLE [Suspect]
     Active Substance: PANTOPRAZOLE
     Route: 064
  7. METAMIZOLE [Suspect]
     Active Substance: METAMIZOLE
     Indication: PRODUCT USED FOR UNKNOWN INDICATION
     Route: 064
  8. NICOTINE. [Suspect]
     Active Substance: NICOTINE
     Route: 064
  9. SIMVASTATIN. [Suspect]
     Active Substance: SIMVASTATIN
     Route: 064
  10. SALBUTAMOL [Suspect]
     Active Substance: ALBUTEROL
     Indication: PRODUCT USED FOR UNKNOWN INDICATION
     Route: 064
  11. HYDROXYCHLOROQUINE [Suspect]
     Active Substance: HYDROXYCHLOROQUINE
     Route: 064
  12. XARELTO [Suspect]
     Active Substance: RIVAROXABAN
     Route: 064
  13. TACROLIMUS. [Suspect]
     Active Substance: TACROLIMUS
     Route: 064
  14. RAMIPRIL. [Suspect]
     Active Substance: RAMIPRIL
     Route: 064
  15. ENOXAPARIN SODIUM. [Suspect]
     Active Substance: ENOXAPARIN SODIUM
     Route: 064

REACTIONS (7)
  - Foetal exposure during pregnancy [Fatal]
  - Cardiac septal defect [Fatal]
  - Ventricular septal defect [Fatal]
  - Congenital cardiovascular anomaly [Fatal]
  - Truncus arteriosus persistent [Fatal]
  - Death [Fatal]
  - Heart disease congenital [Fatal]
